FAERS Safety Report 5843373-5 (Version None)
Quarter: 2008Q3

REPORT INFORMATION
  Report Type: 
  Country: None (occurrence: None)
  Receive Date: 20080813
  Receipt Date: 20070711
  Transmission Date: 20090109
  Serious: No
  Sender: FDA-Public Use
  Company Number: US-BAYER-US-2007-025741

PATIENT
  Age: 43 Year
  Sex: Female
  Weight: 102 kg

DRUGS (4)
  1. MAGNEVIST [Suspect]
     Indication: NUCLEAR MAGNETIC RESONANCE IMAGING BRAIN
     Dosage: TOTAL DAILY DOSE: 10 ML  UNIT DOSE: 10 ML
     Route: 042
     Dates: start: 20070711, end: 20070711
  2. METFORMIN HCL [Concomitant]
     Indication: BLOOD GLUCOSE ABNORMAL
     Dosage: UNIT DOSE: 500 MG
  3. GLIPIZIDE [Concomitant]
     Indication: BLOOD GLUCOSE ABNORMAL
     Dosage: UNIT DOSE: 10 MG
  4. DIETHYLPROPION HYDROCHLORIDE TAB [Concomitant]
     Dosage: UNIT DOSE: 75 MG

REACTIONS (2)
  - FLUSHING [None]
  - PRURITUS [None]
